FAERS Safety Report 4517697-8 (Version None)
Quarter: 2004Q4

REPORT INFORMATION
  Report Type: 
  Country: None (occurrence: None)
  Receive Date: 20041130
  Receipt Date: 20041116
  Transmission Date: 20050328
  Serious: Yes (Other)
  Sender: FDA-Public Use
  Company Number: 2004093202

PATIENT
  Age: 92 Year
  Sex: Male
  Weight: 74.3899 kg

DRUGS (3)
  1. UNISOM [Suspect]
     Indication: INSOMNIA
     Dosage: ONE TABLET QD, ORAL
     Route: 048
     Dates: start: 20040101
  2. ASPIRIN [Concomitant]
  3. LANSOPRAZOLE [Concomitant]

REACTIONS (2)
  - DRUG DEPENDENCE [None]
  - INSOMNIA [None]
